FAERS Safety Report 9414027 (Version 1)
Quarter: 2013Q3

REPORT INFORMATION
  Report Type: Spontaneous
  Country: DE (occurrence: DE)
  Receive Date: 20130723
  Receipt Date: 20130723
  Transmission Date: 20140515
  Serious: Yes (Congenital Anomaly, Other)
  Sender: FDA-Public Use
  Company Number: DE-SANOFI-AVENTIS-2013SA073426

PATIENT
  Age: 0 Day
  Sex: Female
  Weight: 4 kg

DRUGS (5)
  1. CLEXANE [Suspect]
     Indication: THROMBOSIS PROPHYLAXIS
     Route: 064
  2. ROXITHROMYCIN [Concomitant]
     Indication: LYME DISEASE
     Route: 064
  3. AMOXICILLIN [Concomitant]
     Indication: LYME DISEASE
     Route: 064
  4. CEFUROXIME [Concomitant]
     Indication: LYME DISEASE
     Route: 064
  5. FOLIC ACID [Concomitant]
     Indication: PROPHYLAXIS OF NEURAL TUBE DEFECT
     Route: 064

REACTIONS (5)
  - Cleft lip and palate [Unknown]
  - Foetal exposure timing unspecified [Unknown]
  - Cytogenetic abnormality [Not Recovered/Not Resolved]
  - Large for dates baby [Unknown]
  - Premature baby [Recovered/Resolved]
